FAERS Safety Report 4927707-1 (Version None)
Quarter: 2006Q1

REPORT INFORMATION
  Report Type: 
  Country: None (occurrence: None)
  Receive Date: 20060228
  Receipt Date: 20060215
  Transmission Date: 20060701
  Serious: Yes (Hospitalization)
  Sender: FDA-Public Use
  Company Number: FR-JNJFOC-20040300868

PATIENT
  Age: 65 Year
  Sex: Male
  Weight: 51 kg

DRUGS (6)
  1. REMICADE [Suspect]
     Indication: POLYARTHRITIS
     Route: 042
  2. REMICADE [Suspect]
     Indication: RHEUMATOID ARTHRITIS
     Route: 042
  3. GLUCOPHAGE [Concomitant]
     Route: 048
  4. LIPANTHYL [Concomitant]
     Route: 048
  5. TENORMIN [Concomitant]
     Route: 065
  6. ZOCOR [Concomitant]
     Route: 048

REACTIONS (5)
  - CERVICAL GLAND TUBERCULOSIS [None]
  - CHOLESTASIS [None]
  - DISSEMINATED TUBERCULOSIS [None]
  - PULMONARY TUBERCULOSIS [None]
  - SPLEEN TUBERCULOSIS [None]
